FAERS Safety Report 18496934 (Version 2)
Quarter: 2021Q2

REPORT INFORMATION
  Report Type: Other
  Country: JP (occurrence: JP)
  Receive Date: 20201112
  Receipt Date: 20210615
  Transmission Date: 20210717
  Serious: Yes (Other)
  Sender: FDA-Public Use
  Company Number: JP-ROCHE-2310077

PATIENT

DRUGS (2)
  1. TAS?102 [Suspect]
     Active Substance: TIPIRACIL HYDROCHLORIDE\TRIFLURIDINE
     Indication: COLORECTAL CANCER METASTATIC
     Dosage: ON DAYS 1?5 AND 8?12 IN A 4?WEEKS CYCLE
     Route: 048
  2. BEVACIZUMAB. [Suspect]
     Active Substance: BEVACIZUMAB
     Indication: COLORECTAL CANCER METASTATIC
     Dosage: 30 MINUTES IN EVERY 2 WEEKS?ON DAYS 1 AND 15
     Route: 042

REACTIONS (10)
  - Neutropenia [Unknown]
  - Nausea [Unknown]
  - Thrombocytopenia [Unknown]
  - Hypertension [Unknown]
  - Vomiting [Unknown]
  - Anaemia [Unknown]
  - Hepatic function abnormal [Unknown]
  - Fatigue [Unknown]
  - Leukopenia [Unknown]
  - Decreased appetite [Unknown]
